FAERS Safety Report 24738259 (Version 2)
Quarter: 2025Q1

REPORT INFORMATION
  Report Type: Spontaneous
  Country: FR (occurrence: FR)
  Receive Date: 20241216
  Receipt Date: 20250327
  Transmission Date: 20250409
  Serious: Yes (Hospitalization)
  Sender: FRESENIUS KABI
  Company Number: None

PATIENT
  Age: 50 Year
  Sex: Female
  Weight: 70 kg

DRUGS (14)
  1. PEMETREXED [Suspect]
     Active Substance: PEMETREXED
     Indication: Metastatic bronchial carcinoma
     Route: 042
     Dates: start: 20241030
  2. PEMETREXED [Suspect]
     Active Substance: PEMETREXED
     Route: 042
     Dates: start: 20241031
  3. CARBOPLATIN [Suspect]
     Active Substance: CARBOPLATIN
     Indication: Metastatic bronchial carcinoma
     Route: 042
     Dates: start: 20241030
  4. CARBOPLATIN [Suspect]
     Active Substance: CARBOPLATIN
     Route: 042
     Dates: start: 20241031
  5. RYBREVANT [Suspect]
     Active Substance: AMIVANTAMAB-VMJW
     Indication: Metastatic bronchial carcinoma
     Route: 042
     Dates: start: 20241030
  6. RYBREVANT [Suspect]
     Active Substance: AMIVANTAMAB-VMJW
     Route: 042
     Dates: start: 20241031
  7. APREPITANT [Concomitant]
     Active Substance: APREPITANT
     Indication: Product used for unknown indication
  8. METHYLPREDNISOLONE [Concomitant]
     Active Substance: METHYLPREDNISOLONE
     Indication: Product used for unknown indication
  9. ONDANSETRON [Concomitant]
     Active Substance: ONDANSETRON
     Indication: Product used for unknown indication
  10. ACETAMINOPHEN [Concomitant]
     Active Substance: ACETAMINOPHEN
     Indication: Product used for unknown indication
  11. DEXCHLORPHENIRAMINE (MALEATE) [Concomitant]
     Indication: Product used for unknown indication
  12. XARELTO [RIVAROXABAN] [Concomitant]
     Indication: Product used for unknown indication
  13. PANTOPRAZOLE [Concomitant]
     Active Substance: PANTOPRAZOLE
     Indication: Product used for unknown indication
  14. MOVENTIG [NALOXEGOL OXALATE] [Concomitant]
     Indication: Product used for unknown indication

REACTIONS (2)
  - Oesophagitis [Recovering/Resolving]
  - Pancytopenia [Recovering/Resolving]

NARRATIVE: CASE EVENT DATE: 20241101
